FAERS Safety Report 5269130-9 (Version None)
Quarter: 2007Q1

REPORT INFORMATION
  Report Type: 
  Country: None (occurrence: None)
  Receive Date: 20070319
  Receipt Date: 20060725
  Transmission Date: 20070707
  Serious: No
  Sender: FDA-Public Use
  Company Number: US-ELI_LILLY_AND_COMPANY-US200606004886

PATIENT
  Age: 65 Year
  Sex: Female
  Weight: 65.759 kg

DRUGS (4)
  1. EVISTA [Suspect]
     Indication: OSTEOPOROSIS
     Dosage: UNK, UNKNOWN
     Route: 048
  2. CALCIUM WITH VITAMIN D [Concomitant]
     Dosage: 500 MG, 2/D
     Route: 065
  3. MULTIVITAMIN ^LAPPE^ [Concomitant]
     Dosage: UNK UNK, DAILY (1/D)
     Route: 065
  4. DIAZIDE                            /00413701/ [Concomitant]
     Dosage: UNK, UNKNOWN
     Route: 065
     Dates: end: 20060101

REACTIONS (3)
  - BONE DENSITY DECREASED [None]
  - HEARING IMPAIRED [None]
  - MEMORY IMPAIRMENT [None]
